FAERS Safety Report 19489608 (Version 1)
Quarter: 2021Q3

REPORT INFORMATION
  Report Type: Spontaneous
  Country: GB (occurrence: GB)
  Receive Date: 20210704
  Receipt Date: 20210704
  Transmission Date: 20211014
  Serious: Yes (Disabling, Other)
  Sender: FDA-Public Use
  Company Number: GB-TEVA-2021-GB-1927630

PATIENT
  Age: 47 Year
  Sex: Female
  Weight: 77 kg

DRUGS (12)
  1. EUMOVATE [Suspect]
     Active Substance: CLOBETASONE BUTYRATE
     Indication: ECZEMA
     Dosage: VARIED
     Route: 061
     Dates: start: 19780101, end: 20200124
  2. CYCLOSPORINE. [Concomitant]
     Active Substance: CYCLOSPORINE
     Indication: ILL-DEFINED DISORDER
  3. BOOTS PARACETAMOL [Concomitant]
     Indication: ILL-DEFINED DISORDER
  4. VITAMIN D3 10000 IU/G [Concomitant]
     Indication: ILL-DEFINED DISORDER
     Dosage: 10000 IU/G
  5. BETNOVATE [Suspect]
     Active Substance: BETAMETHASONE
     Indication: ECZEMA
     Dosage: VARIED
     Route: 061
     Dates: start: 19780101, end: 20200124
  6. HYDROCORTISONE. [Suspect]
     Active Substance: HYDROCORTISONE
     Indication: ECZEMA
     Dosage: VARIED
     Route: 061
     Dates: start: 19780101, end: 20200124
  7. BIOTIN [Concomitant]
     Active Substance: BIOTIN
     Indication: ILL-DEFINED DISORDER
  8. ESCITALOPRAM OXALATE. [Concomitant]
     Active Substance: ESCITALOPRAM OXALATE
     Indication: ILL-DEFINED DISORDER
  9. METHOTREXAT [Concomitant]
     Active Substance: METHOTREXATE
     Indication: ILL-DEFINED DISORDER
  10. VISCOPASTE [Concomitant]
     Indication: ILL-DEFINED DISORDER
  11. ZERODERMA EMOLLIENT MEDICINAL BATH [Concomitant]
     Indication: ILL-DEFINED DISORDER
  12. CETRIZIN [Concomitant]
     Indication: ILL-DEFINED DISORDER

REACTIONS (6)
  - Erythema [Recovering/Resolving]
  - Perioral dermatitis [Recovering/Resolving]
  - Skin burning sensation [Recovering/Resolving]
  - Molluscum contagiosum [Recovering/Resolving]
  - Eczema [Recovering/Resolving]
  - Pruritus [Recovering/Resolving]

NARRATIVE: CASE EVENT DATE: 20190101
